FAERS Safety Report 22783182 (Version 3)
Quarter: 2023Q4

REPORT INFORMATION
  Report Type: Spontaneous
  Country: US (occurrence: US)
  Receive Date: 20230803
  Receipt Date: 20231024
  Transmission Date: 20240109
  Serious: No
  Sender: FDA-Public Use
  Company Number: US-PFIZER INC-PV202300113198

PATIENT
  Age: 85 Year
  Sex: Female
  Weight: 47.17 kg

DRUGS (3)
  1. IBRANCE [Suspect]
     Active Substance: PALBOCICLIB
     Indication: Neoplasm malignant
     Dosage: 1 TAB FOR 3 WEEKS, FOLLOWED BY 1 WEEK WITH FOOD
     Route: 048
     Dates: start: 20230717
  2. LETROZOLE [Concomitant]
     Active Substance: LETROZOLE
     Indication: Neoplasm malignant
     Dosage: EVERY MORNING
     Route: 048
     Dates: start: 202210
  3. XGEVA [Concomitant]
     Active Substance: DENOSUMAB
     Dosage: UNK
     Dates: start: 20230726

REACTIONS (4)
  - Weight decreased [Unknown]
  - Body height decreased [Unknown]
  - Skin disorder [Unknown]
  - Bone disorder [Unknown]
